FAERS Safety Report 23549531 (Version 1)
Quarter: 2024Q1

REPORT INFORMATION
  Report Type: Spontaneous
  Country: US (occurrence: None)
  Receive Date: 20240220
  Receipt Date: 20240220
  Transmission Date: 20240409
  Serious: Yes (Other)
  Sender: FDA-Public Use
  Company Number: None

PATIENT
  Sex: Female
  Weight: 76.05 kg

DRUGS (6)
  1. GLEOSTINE [Suspect]
     Active Substance: LOMUSTINE
     Indication: Brain neoplasm malignant
     Dosage: OTHER FREQUENCY : DAY 1OF28DAY CYCLE;?
     Route: 048
     Dates: start: 20230810
  2. LEVETIRACETAM [Concomitant]
     Active Substance: LEVETIRACETAM
  3. MATULANE [Concomitant]
     Active Substance: PROCARBAZINE HYDROCHLORIDE
  4. VITAMINS [Concomitant]
     Active Substance: VITAMINS
  5. PROBIOTICS NOS [Concomitant]
     Active Substance: PROBIOTICS NOS
  6. hair skin and nails [Concomitant]

REACTIONS (3)
  - Thrombocytopenia [None]
  - Abdominal pain [None]
  - Inappropriate schedule of product administration [None]
